FAERS Safety Report 4616191-3 (Version None)
Quarter: 2005Q1

REPORT INFORMATION
  Report Type: 
  Country: None (occurrence: None)
  Receive Date: 20050321
  Receipt Date: 20050310
  Transmission Date: 20050727
  Serious: Yes (Death, Hospitalization)
  Sender: FDA-Public Use
  Company Number: GXKR2005NL00730

PATIENT
  Age: 52 Year
  Sex: Female

DRUGS (4)
  1. METFORMIN (NGX)(METFORMIN) [Suspect]
     Indication: DIABETES MELLITUS
     Dosage: 850 MG, TID
  2. TOLBUTAMIDE [Concomitant]
  3. VENLAFAXINE HCL [Concomitant]
  4. ACAMPROATE (ACAMPROSATE) [Concomitant]

REACTIONS (21)
  - ABDOMINAL PAIN [None]
  - ALCOHOL POISONING [None]
  - ANURIA [None]
  - ASCITES [None]
  - BRONCHOPNEUMONIA [None]
  - COMA [None]
  - DYSPNOEA [None]
  - HAEMATEMESIS [None]
  - HAEMODIALYSIS [None]
  - HEPATIC CIRRHOSIS [None]
  - LACTIC ACIDOSIS [None]
  - LIVER DISORDER [None]
  - MEDICATION ERROR [None]
  - MULTI-ORGAN FAILURE [None]
  - NAUSEA [None]
  - PULMONARY OEDEMA [None]
  - RENAL FAILURE [None]
  - RESPIRATORY FAILURE [None]
  - SHOCK [None]
  - SPLENOMEGALY [None]
  - VOMITING [None]
